FAERS Safety Report 7768749-0 (Version None)
Quarter: 2011Q3

REPORT INFORMATION
  Report Type: 
  Country: None (occurrence: None)
  Receive Date: 20110922
  Receipt Date: 20110217
  Transmission Date: 20111222
  Serious: Yes (Other)
  Sender: FDA-Public Use
  Company Number: US-ASTRAZENECA-2011SE09281

PATIENT
  Age: 49 Year
  Sex: Female
  Weight: 77.1 kg

DRUGS (2)
  1. SEROQUEL XR [Suspect]
     Indication: BIPOLAR DISORDER
     Route: 048
     Dates: start: 20101101, end: 20110101
  2. SEROQUEL XR [Suspect]
     Route: 048
     Dates: start: 20110101, end: 20110201

REACTIONS (2)
  - IMPAIRED WORK ABILITY [None]
  - SUICIDAL IDEATION [None]
